FAERS Safety Report 7182937-6 (Version None)
Quarter: 2010Q4

REPORT INFORMATION
  Report Type: 
  Country: None (occurrence: None)
  Receive Date: 20101209
  Receipt Date: 20101123
  Transmission Date: 20110411
  Serious: Yes (Other)
  Sender: FDA-Public Use
  Company Number: GB-ACCORD-006587

PATIENT
  Age: 40 Year
  Sex: Male

DRUGS (7)
  1. TOPIRAMATE [Suspect]
     Indication: EPILEPSY
     Dosage: 50.00-MG-2.00PER / ORAL-1.0DAYS
     Route: 048
  2. AMOXACILLIN(AMOXACILLIN) [Concomitant]
  3. CITALOPRAM HYDROBROMIDE [Concomitant]
  4. INFLUENZA VIRUS(INFLUENZA VIRUS) [Concomitant]
  5. LAMOTRIGINE [Concomitant]
  6. SOFRADEX(SOFRADEX) [Concomitant]
  7. TOPIRAMATE [Concomitant]

REACTIONS (4)
  - CONDITION AGGRAVATED [None]
  - DRUG DISPENSING ERROR [None]
  - EPILEPSY [None]
  - INCORRECT DOSE ADMINISTERED [None]
